FAERS Safety Report 4652906-6 (Version None)
Quarter: 2005Q2

REPORT INFORMATION
  Report Type: 
  Country: None (occurrence: None)
  Receive Date: 20050503
  Receipt Date: 20050414
  Transmission Date: 20051028
  Serious: Yes (Congenital Anomaly)
  Sender: FDA-Public Use
  Company Number: B0124822A

PATIENT
  Age: 14 Day
  Sex: Female
  Weight: 2.903 kg

DRUGS (2)
  1. LAMICTAL [Suspect]
     Indication: EPILEPSY
     Dosage: ORAL
     Route: 048
  2. VALPROATE SODIUM [Concomitant]

REACTIONS (6)
  - ANXIETY [None]
  - CONGENITAL ANOMALY [None]
  - DRUG EXPOSURE DURING PREGNANCY [None]
  - NEONATAL DISORDER [None]
  - PYLORIC STENOSIS [None]
  - WEIGHT DECREASED [None]
